FAERS Safety Report 18339337 (Version 1)
Quarter: 2020Q4

REPORT INFORMATION
  Report Type: Spontaneous
  Country: US (occurrence: US)
  Receive Date: 20201002
  Receipt Date: 20201002
  Transmission Date: 20210113
  Serious: Yes (Death)
  Sender: FDA-Public Use
  Company Number: None

PATIENT
  Age: 60 Year
  Sex: Male

DRUGS (13)
  1. MYCOPHENOLATE [Suspect]
     Active Substance: MYCOPHENOLIC ACID
     Route: 048
     Dates: start: 20160602
  2. OMEPRAZOLE. [Concomitant]
     Active Substance: OMEPRAZOLE
  3. SENNA LAXATIVE [Concomitant]
     Active Substance: SENNOSIDES
  4. XANAX [Concomitant]
     Active Substance: ALPRAZOLAM
  5. ATIVAN [Concomitant]
     Active Substance: LORAZEPAM
  6. FISH OIL [Concomitant]
     Active Substance: FISH OIL
  7. DOCUSATE [Concomitant]
     Active Substance: DOCUSATE
  8. FOLIC ACID. [Concomitant]
     Active Substance: FOLIC ACID
  9. FLOMAX [Concomitant]
     Active Substance: TAMSULOSIN HYDROCHLORIDE
  10. VITAMIN B6 [Concomitant]
     Active Substance: PYRIDOXINE HYDROCHLORIDE
  11. CYCLOSPORINE. [Concomitant]
     Active Substance: CYCLOSPORINE
  12. FENTANYL. [Concomitant]
     Active Substance: FENTANYL
  13. SODIUM [Concomitant]
     Active Substance: SODIUM

REACTIONS (1)
  - Death [None]
